FAERS Safety Report 8173086-9 (Version None)
Quarter: 2012Q1

REPORT INFORMATION
  Report Type: 
  Country: None (occurrence: None)
  Receive Date: 20120229
  Receipt Date: 20120224
  Transmission Date: 20120608
  Serious: Yes (Hospitalization, Other)
  Sender: FDA-Public Use
  Company Number: SE-JNJFOC-2009017693

PATIENT
  Age: 33 Year
  Sex: Female

DRUGS (5)
  1. IBUPROFEN [Suspect]
     Route: 048
  2. IBUPROFEN [Suspect]
     Indication: HEADACHE
     Dosage: ONE TABLET ON OCCASSION, TWO OR THREE TIMES
     Route: 048
     Dates: start: 20090520, end: 20090607
  3. SILICON [Concomitant]
     Indication: HAIR DISORDER
     Dosage: UNSPECIFIED
     Route: 065
  4. VITAMINERAL KVINNA ACO [Suspect]
     Indication: MEDICAL DIET
     Dosage: ONE TABLET
     Route: 048
     Dates: start: 20070101
  5. ALVEDON [Concomitant]
     Indication: PRODUCT USED FOR UNKNOWN INDICATION
     Dosage: OCCASIONALY
     Route: 065

REACTIONS (4)
  - HAEMORRHAGE [None]
  - RETAINED PLACENTA OR MEMBRANES [None]
  - MATERNAL EXPOSURE DURING PREGNANCY [None]
  - UTERINE ATONY [None]
